FAERS Safety Report 16430971 (Version 2)
Quarter: 2019Q3

REPORT INFORMATION
  Report Type: Spontaneous
  Country: JP (occurrence: JP)
  Receive Date: 20190614
  Receipt Date: 20190701
  Transmission Date: 20191004
  Serious: Yes (Other)
  Sender: FDA-Public Use
  Company Number: JP-TEVA-2019-JP-1064140

PATIENT
  Age: 82 Year
  Sex: Male

DRUGS (8)
  1. TS-1 [Suspect]
     Active Substance: GIMERACIL\OTERACIL\TEGAFUR
     Indication: GASTRIC CANCER STAGE IV
     Dosage: THE MAN RECEIVED GIMERACIL/OTERACIL/TEGAFUR AS SECOND LINE CHEMOTHERAPY.
     Route: 065
  2. IRINOTECAN [Suspect]
     Active Substance: IRINOTECAN
     Indication: GASTRIC CANCER STAGE IV
     Dosage: THE MAN RECEIVED IRINOTECAN SIMULTANEOUSLY WITH CISPLATIN AS THIRD LINE CHEMOTHERAPY
     Route: 065
  3. CISPLATIN. [Suspect]
     Active Substance: CISPLATIN
     Indication: GASTRIC CANCER STAGE IV
     Route: 065
  4. WARFARIN [Concomitant]
     Active Substance: WARFARIN
     Indication: ATRIAL FIBRILLATION
     Route: 065
  5. TRASTUZUMAB. [Suspect]
     Active Substance: TRASTUZUMAB
     Indication: GASTRIC CANCER STAGE IV
     Dosage: THE MAN RECEIVED 25 COURSES OF TRASTUZUMAB ACROSS 21 MONTHS AS FIRST LINE CHEMOTHERAPY.
     Route: 065
  6. IRINOTECAN [Suspect]
     Active Substance: IRINOTECAN
     Indication: GASTRIC CANCER STAGE IV
     Dosage: DURING THE 14TH COURSE, THE MAN RECEIVED SINGLE-AGENT IRINOTECAN AS THIRD LINE CHEMOTHERAPY
     Route: 065
  7. PACLITAXEL. [Suspect]
     Active Substance: PACLITAXEL
     Indication: GASTRIC CANCER STAGE IV
     Dosage: THE MAN RECEIVED 21 COURSES OF PACLITAXEL ACROSS 21 MONTHS AS FIRST LINE CHEMOTHERAPY.
     Route: 065
  8. LIXIANA [Concomitant]
     Active Substance: EDOXABAN TOSYLATE
     Indication: ATRIAL FIBRILLATION
     Route: 065

REACTIONS (4)
  - Bone marrow disorder [Unknown]
  - Neutropenia [Unknown]
  - Renal impairment [Unknown]
  - Anaemia [Recovering/Resolving]
